FAERS Safety Report 4299198-8 (Version None)
Quarter: 2004Q1

REPORT INFORMATION
  Report Type: 
  Country: None (occurrence: None)
  Receive Date: 20040217
  Receipt Date: 20040206
  Transmission Date: 20041129
  Serious: Yes (Death)
  Sender: FDA-Public Use
  Company Number: APP200400151

PATIENT
  Sex: Female

DRUGS (1)
  1. PROTAMINE SULFATE [Suspect]
     Indication: COAGULATION TIME PROLONGED
     Dosage: 2 IN 1 D, INTRAVENOUS
     Route: 042
     Dates: start: 20040129, end: 20040129

REACTIONS (1)
  - HYPOTENSION [None]
